FAERS Safety Report 9571188 (Version 1)
Quarter: 2013Q4

REPORT INFORMATION
  Report Type: Spontaneous
  Country: EC (occurrence: EC)
  Receive Date: 20131001
  Receipt Date: 20131001
  Transmission Date: 20140711
  Serious: Yes (Other)
  Sender: FDA-Public Use
  Company Number: PHHY2013EC109053

PATIENT
  Age: 35 Year
  Sex: Female

DRUGS (3)
  1. TEGRETOL CR [Suspect]
     Indication: ABNORMAL BEHAVIOUR
     Dosage: 1 DF, QD
     Route: 048
     Dates: start: 201307, end: 201308
  2. HALDOL [Concomitant]
     Dosage: UNK UKN, QD
     Route: 048
  3. ALPRAZOLAM [Concomitant]
     Dosage: 0.5 G, QD
     Route: 048

REACTIONS (10)
  - Genital infection [Recovering/Resolving]
  - Dysphagia [Recovering/Resolving]
  - Mucous membrane disorder [Recovering/Resolving]
  - Blister [Recovering/Resolving]
  - Skin exfoliation [Recovering/Resolving]
  - Chills [Recovering/Resolving]
  - Arthralgia [Recovering/Resolving]
  - Rash [Recovering/Resolving]
  - Pyrexia [Recovering/Resolving]
  - Headache [Recovering/Resolving]
